FAERS Safety Report 8398607-2 (Version None)
Quarter: 2012Q1

REPORT INFORMATION
  Report Type: 
  Country: None (occurrence: None)
  Receive Date: 20120323
  Receipt Date: 20111207
  Transmission Date: 20120608
  Serious: Yes (Hospitalization)
  Sender: FDA-Public Use
  Company Number: 163-21880-11120974

PATIENT
  Age: 60 Year
  Sex: Female
  Weight: 56 kg

DRUGS (6)
  1. CITALOPRAM HYDROBROMIDE [Concomitant]
  2. RANITIDINE HYDROCHLORIDE [Concomitant]
  3. REVLIMID [Suspect]
     Indication: MULTIPLE MYELOMA
     Dosage: 10 MG, DAILY X 28 DAYS, PO
     Route: 048
     Dates: start: 20110609
  4. COLESTIPOL (COLESTIPOL) [Concomitant]
  5. SIMVASTATIN [Concomitant]
  6. ASPIRIN [Concomitant]

REACTIONS (7)
  - ARTHRALGIA [None]
  - FALL [None]
  - JOINT SWELLING [None]
  - GASTRIC DISORDER [None]
  - FLATULENCE [None]
  - RASH [None]
  - BACK PAIN [None]
